FAERS Safety Report 5906054-5 (Version None)
Quarter: 2008Q4

REPORT INFORMATION
  Report Type: 
  Country: None (occurrence: None)
  Receive Date: 20081002
  Receipt Date: 20080911
  Transmission Date: 20090506
  Serious: Yes (Other)
  Sender: FDA-Public Use
  Company Number: SE-ELI_LILLY_AND_COMPANY-SE200809002994

PATIENT

DRUGS (3)
  1. FONTEX [Suspect]
     Dosage: UNK, UNKNOWN
     Route: 064
  2. FOLIC ACID [Concomitant]
     Dosage: UNK, UNKNOWN
     Route: 064
  3. IRON PREPARATIONS [Concomitant]
     Dosage: UNK, UNKNOWN
     Route: 064

REACTIONS (2)
  - DRUG EXPOSURE DURING PREGNANCY [None]
  - PERSISTENT FOETAL CIRCULATION [None]
